FAERS Safety Report 4780106-8 (Version None)
Quarter: 2005Q3

REPORT INFORMATION
  Report Type: 
  Country: None (occurrence: None)
  Receive Date: 20050927
  Receipt Date: 20050621
  Transmission Date: 20060218
  Serious: Yes (Death, Hospitalization)
  Sender: FDA-Public Use
  Company Number: US-MERCK-0506USA03309

PATIENT
  Age: 78 Year
  Sex: Male
  Weight: 61 kg

DRUGS (4)
  1. VIOXX [Suspect]
     Indication: RHEUMATOID ARTHRITIS
     Route: 048
     Dates: start: 19990101, end: 20001101
  2. COUMADIN [Concomitant]
     Indication: THROMBOSIS
     Route: 065
     Dates: start: 19980101, end: 20001126
  3. FLOMAX [Concomitant]
     Indication: BLOOD PRESSURE MANAGEMENT
     Route: 065
  4. DILTIAZEM CD [Concomitant]
     Indication: HEART RATE IRREGULAR
     Route: 065

REACTIONS (4)
  - CEREBROVASCULAR ACCIDENT [None]
  - GASTRIC DISORDER [None]
  - MYOCARDIAL INFARCTION [None]
  - RENAL DISORDER [None]
